FAERS Safety Report 8337188-6 (Version None)
Quarter: 2012Q2

REPORT INFORMATION
  Report Type: 
  Country: None (occurrence: None)
  Receive Date: 20120504
  Receipt Date: 20120430
  Transmission Date: 20120825
  Serious: Yes (Other)
  Sender: FDA-Public Use
  Company Number: US-AMGEN-USASP2012027120

PATIENT
  Age: 20 Year
  Sex: Male

DRUGS (1)
  1. ENBREL [Suspect]
     Indication: PSORIATIC ARTHROPATHY
     Dosage: 50 MG, QWK
     Dates: start: 20110401

REACTIONS (8)
  - DIZZINESS [None]
  - HALLUCINATION [None]
  - VISION BLURRED [None]
  - PYREXIA [None]
  - HEADACHE [None]
  - CHILLS [None]
  - MYALGIA [None]
  - OROPHARYNGEAL PAIN [None]
